FAERS Safety Report 21536085 (Version 1)
Quarter: 2022Q4

REPORT INFORMATION
  Report Type: Spontaneous
  Country: US (occurrence: None)
  Receive Date: 20221031
  Receipt Date: 20221031
  Transmission Date: 20230112
  Serious: Yes (Hospitalization)
  Sender: FDA-Public Use
  Company Number: None

PATIENT
  Age: 68 Year
  Sex: Male

DRUGS (2)
  1. DROXIDOPA [Suspect]
     Active Substance: DROXIDOPA
     Indication: Syncope
     Dosage: FREQUENCY : TWICE A DAY;?
     Route: 048
     Dates: start: 20221008, end: 20221027
  2. DROXIDOPA [Suspect]
     Active Substance: DROXIDOPA
     Indication: Fall

REACTIONS (2)
  - Loss of consciousness [None]
  - Therapy change [None]

NARRATIVE: CASE EVENT DATE: 20221021
